FAERS Safety Report 5749254-X (Version None)
Quarter: 2008Q2

REPORT INFORMATION
  Report Type: 
  Country: None (occurrence: None)
  Receive Date: 20080527
  Receipt Date: 20080516
  Transmission Date: 20081010
  Serious: Yes (Other)
  Sender: FDA-Public Use
  Company Number: US-JNJFOC-20080206399

PATIENT
  Sex: Male
  Weight: 99.16 kg

DRUGS (11)
  1. REMICADE [Suspect]
     Indication: RHEUMATOID ARTHRITIS
     Route: 042
  2. TOPROL-XL [Concomitant]
     Indication: HYPERTENSION
  3. NORVASC [Concomitant]
     Indication: HYPERTENSION
  4. LIPITOR [Concomitant]
     Indication: HYPERCHOLESTEROLAEMIA
  5. ZOLOFT [Concomitant]
     Indication: DEPRESSION
  6. PREDNISONE TAB [Concomitant]
     Indication: RHEUMATOID ARTHRITIS
  7. FISH OIL [Concomitant]
  8. ASPIRIN [Concomitant]
  9. AMBIEN [Concomitant]
     Indication: INSOMNIA
  10. PROTONIX [Concomitant]
     Indication: GASTROOESOPHAGEAL REFLUX DISEASE
     Dosage: AS NEEDED
  11. ALPRAZOLAM [Concomitant]
     Indication: ANXIETY

REACTIONS (2)
  - BASAL CELL CARCINOMA [None]
  - MALIGNANT MELANOMA [None]
